FAERS Safety Report 5981862-3 (Version None)
Quarter: 2008Q4

REPORT INFORMATION
  Report Type: 
  Country: None (occurrence: None)
  Receive Date: 20081202
  Receipt Date: 20081122
  Transmission Date: 20090506
  Serious: Yes (Other)
  Sender: FDA-Public Use
  Company Number: CHPA2008US20568

PATIENT
  Age: 9 Year
  Sex: Male

DRUGS (1)
  1. GAS-X (NCH) (SIMETHICONE) DISPERSIBLE TABLET [Suspect]
     Dosage: 62.5 MG, ONCE/SINGLE, ORAL
     Route: 048
     Dates: start: 20081122, end: 20081122

REACTIONS (5)
  - INCORRECT DOSE ADMINISTERED [None]
  - LIP SWELLING [None]
  - PARAESTHESIA [None]
  - PRURITUS GENERALISED [None]
  - SWOLLEN TONGUE [None]
